FAERS Safety Report 15853376 (Version 1)
Quarter: 2019Q1

REPORT INFORMATION
  Report Type: Spontaneous
  Country: US (occurrence: US)
  Receive Date: 20190120
  Receipt Date: 20190120
  Transmission Date: 20190417
  Serious: Yes (Other)
  Sender: FDA-Public Use
  Company Number: None

PATIENT
  Age: 44 Year
  Sex: Female

DRUGS (1)
  1. CYMBALTA [Suspect]
     Active Substance: DULOXETINE HYDROCHLORIDE
     Indication: FIBROMYALGIA
     Dates: start: 20100101, end: 20181125

REACTIONS (10)
  - Withdrawal syndrome [None]
  - Anxiety [None]
  - Insomnia [None]
  - Depression [None]
  - Discomfort [None]
  - Suicidal ideation [None]
  - Irritability [None]
  - Paraesthesia [None]
  - Feeling abnormal [None]
  - Loss of personal independence in daily activities [None]

NARRATIVE: CASE EVENT DATE: 20181125
